FAERS Safety Report 4603234-6 (Version None)
Quarter: 2005Q1

REPORT INFORMATION
  Report Type: 
  Country: None (occurrence: None)
  Receive Date: 20050308
  Receipt Date: 20050224
  Transmission Date: 20050727
  Serious: Yes (Life-Threatening, Hospitalization)
  Sender: FDA-Public Use
  Company Number: 2005-02-1708

PATIENT
  Age: 9 Month
  Sex: Female

DRUGS (2)
  1. LORATADINE/AMBROXOL HCL SYRUP [Suspect]
     Indication: LARYNGITIS
     Dosage: BID ORAL
     Route: 048
  2. PARACETAMOL [Concomitant]

REACTIONS (2)
  - PYREXIA [None]
  - THROMBOTIC THROMBOCYTOPENIC PURPURA [None]
